FAERS Safety Report 5848411-1 (Version None)
Quarter: 2008Q3

REPORT INFORMATION
  Report Type: 
  Country: None (occurrence: None)
  Receive Date: 20080814
  Receipt Date: 20070220
  Transmission Date: 20090109
  Serious: Yes (Other)
  Sender: FDA-Public Use
  Company Number: 2008S1011617

PATIENT
  Age: 55 Year
  Sex: Male

DRUGS (3)
  1. CLARITHROMYCIN [Suspect]
     Indication: LOWER RESPIRATORY TRACT INFECTION
     Dosage: 250 MG; TWICE A DAY, 250 MG; TWICE A DAY
     Dates: start: 20070129, end: 20071031
  2. CLARITHROMYCIN [Suspect]
     Indication: LOWER RESPIRATORY TRACT INFECTION
     Dosage: 250 MG; TWICE A DAY, 250 MG; TWICE A DAY
     Dates: start: 20070129, end: 20071031
  3. DOXYCYCLINE [Concomitant]

REACTIONS (4)
  - GAIT DISTURBANCE [None]
  - GUILLAIN-BARRE SYNDROME [None]
  - HYPOAESTHESIA [None]
  - MALAISE [None]
